FAERS Safety Report 8033330-5 (Version None)
Quarter: 2012Q1

REPORT INFORMATION
  Report Type: 
  Country: None (occurrence: None)
  Receive Date: 20120110
  Receipt Date: 20120104
  Transmission Date: 20120608
  Serious: Yes (Hospitalization)
  Sender: FDA-Public Use
  Company Number: US-JNJFOC-20120101069

PATIENT
  Sex: Male
  Weight: 80.74 kg

DRUGS (9)
  1. CONCERTA [Suspect]
     Route: 048
     Dates: start: 20100101, end: 20100101
  2. ZYPREXA [Suspect]
     Indication: DEPRESSION
     Route: 065
  3. CONCERTA [Suspect]
     Indication: NARCOLEPSY
     Dosage: 36 MG TWICE=72 MG
     Route: 048
     Dates: start: 20100101
  4. CYMBALTA [Suspect]
     Indication: BIPOLAR DISORDER
     Route: 065
  5. CHANTIX [Suspect]
     Indication: SMOKING CESSATION THERAPY
     Route: 065
     Dates: start: 20100101, end: 20100101
  6. ZYPREXA [Suspect]
     Indication: BIPOLAR DISORDER
     Route: 065
  7. CELEXA [Suspect]
     Indication: DEPRESSION
     Route: 065
  8. CELEXA [Suspect]
     Indication: BIPOLAR DISORDER
     Route: 065
  9. CYMBALTA [Suspect]
     Indication: DEPRESSION
     Route: 065

REACTIONS (5)
  - TREATMENT NONCOMPLIANCE [None]
  - TOBACCO USER [None]
  - DRUG SCREEN NEGATIVE [None]
  - DRUG INEFFECTIVE [None]
  - SURGERY [None]
